FAERS Safety Report 9489518 (Version 2)
Quarter: 2013Q3

REPORT INFORMATION
  Report Type: Report from Study
  Country: CA (occurrence: CA)
  Receive Date: 20130829
  Receipt Date: 20130904
  Transmission Date: 20140515
  Serious: Yes (Other)
  Sender: FDA-Public Use
  Company Number: CA-ABBOTT-13P-028-1137056-00

PATIENT
  Age: 41 Year
  Sex: Female

DRUGS (2)
  1. HUMIRA [Suspect]
     Indication: CROHN^S DISEASE
     Route: 058
     Dates: start: 20100116, end: 20130809
  2. HUMIRA [Suspect]

REACTIONS (3)
  - Intestinal stenosis [Recovered/Resolved]
  - Breast mass [Not Recovered/Not Resolved]
  - Dental caries [Recovered/Resolved]
